FAERS Safety Report 8590260-8 (Version None)
Quarter: 2012Q3

REPORT INFORMATION
  Report Type: 
  Country: None (occurrence: None)
  Receive Date: 20120813
  Receipt Date: 20120731
  Transmission Date: 20120928
  Serious: Yes (Death)
  Sender: FDA-Public Use
  Company Number: US-GLAXOSMITHKLINE-A0932385A

PATIENT
  Age: 63 Year
  Sex: Male

DRUGS (2)
  1. AVANDAMET [Suspect]
     Indication: DIABETES MELLITUS
     Route: 048
     Dates: start: 20040203, end: 20050925
  2. AVANDIA [Suspect]
     Indication: DIABETES MELLITUS
     Route: 048
     Dates: start: 20050418, end: 20100305

REACTIONS (4)
  - CARDIOGENIC SHOCK [None]
  - SUDDEN DEATH [None]
  - MYOCARDIAL INFARCTION [None]
  - CARDIAC ARREST [None]
